FAERS Safety Report 8943183 (Version 1)
Quarter: 2012Q4

REPORT INFORMATION
  Report Type: 
  Country: US (occurrence: US)
  Receive Date: 20121204
  Receipt Date: 20121204
  Transmission Date: 20130627
  Serious: Yes (Hospitalization, Other)
  Sender: FDA-Public Use
  Company Number: US-BAYER-2012-125019

PATIENT
  Age: 75 Year
  Sex: Female

DRUGS (7)
  1. ASPIRIN [Suspect]
  2. METFORMIN HCL [Suspect]
     Indication: TYPE II DIABETES MELLITUS
     Dosage: 3000 milligram
  3. COUMADIN [Interacting]
     Indication: ATRIAL FIBRILLATION
  4. DOBUTAMINE [Concomitant]
     Dosage: UNK
     Dates: start: 20121005
  5. AMIODARONE [Interacting]
     Dosage: UNK
     Dates: start: 20121005
  6. DIURETICS [Concomitant]
  7. BETA BLOCKING AGENTS [Concomitant]

REACTIONS (14)
  - Gastrointestinal haemorrhage [Recovered/Resolved]
  - Melaena [Recovered/Resolved]
  - Fatigue [Recovered/Resolved]
  - Nausea [Recovered/Resolved]
  - Anaemia [Recovered/Resolved]
  - Epistaxis [None]
  - Chest pain [Not Recovered/Not Resolved]
  - Dyspnoea [Not Recovered/Not Resolved]
  - Pyrexia [None]
  - Chills [None]
  - Hypotension [None]
  - Dizziness [None]
  - Drug interaction [None]
  - Drug interaction [None]
